FAERS Safety Report 14013744 (Version 1)
Quarter: 2017Q3

REPORT INFORMATION
  Report Type: Spontaneous
  Country: US (occurrence: US)
  Receive Date: 20170926
  Receipt Date: 20170926
  Transmission Date: 20171128
  Serious: No
  Sender: FDA-Public Use
  Company Number: US-SAGENT PHARMACEUTICALS-2017SAG000250

PATIENT
  Age: 22 Year
  Sex: Male

DRUGS (1)
  1. IBANDRONATE SODIUM. [Suspect]
     Active Substance: IBANDRONATE SODIUM
     Dosage: 2 MG
     Route: 042
     Dates: start: 20170621, end: 20170621

REACTIONS (3)
  - Swelling [Recovering/Resolving]
  - Administration site discolouration [Recovering/Resolving]
  - Infusion site extravasation [Recovering/Resolving]

NARRATIVE: CASE EVENT DATE: 20170621
